FAERS Safety Report 7058123-7 (Version None)
Quarter: 2010Q4

REPORT INFORMATION
  Report Type: 
  Country: None (occurrence: None)
  Receive Date: 20101022
  Receipt Date: 20101014
  Transmission Date: 20110411
  Serious: Yes (Hospitalization, Disabling)
  Sender: FDA-Public Use
  Company Number: US-MERCK-0901USA04184

PATIENT
  Age: 60 Year
  Sex: Female
  Weight: 70 kg

DRUGS (5)
  1. FOSAMAX PLUS D [Suspect]
     Route: 048
     Dates: start: 20060101, end: 20080201
  2. FOSAMAX [Suspect]
     Indication: OSTEOPOROSIS
     Route: 048
     Dates: start: 19980101, end: 20040101
  3. FORTEO [Concomitant]
     Route: 065
     Dates: start: 20080201
  4. ACTONEL [Concomitant]
     Route: 065
     Dates: start: 20040101, end: 20060101
  5. ESTROGENS (UNSPECIFIED) [Concomitant]
     Route: 065

REACTIONS (3)
  - FEMUR FRACTURE [None]
  - HIP FRACTURE [None]
  - PAIN IN EXTREMITY [None]
